FAERS Safety Report 21012121 (Version 1)
Quarter: 2022Q2

REPORT INFORMATION
  Report Type: Spontaneous
  Country: IL (occurrence: IL)
  Receive Date: 20220627
  Receipt Date: 20220627
  Transmission Date: 20220720
  Serious: Yes (Other)
  Sender: FDA-Public Use
  Company Number: IL-BAYER-2022P005755

PATIENT
  Age: 82 Year
  Sex: Male

DRUGS (6)
  1. XOFIGO [Suspect]
     Active Substance: RADIUM RA-223 DICHLORIDE
     Indication: Prostate cancer
     Dosage: UNK UNK, Q1MON
     Dates: start: 20220303
  2. XOFIGO [Suspect]
     Active Substance: RADIUM RA-223 DICHLORIDE
     Indication: Prostate cancer
     Dosage: UNK UNK, Q1MON
     Dates: start: 20220331
  3. XOFIGO [Suspect]
     Active Substance: RADIUM RA-223 DICHLORIDE
     Indication: Prostate cancer
     Dosage: UNK UNK, Q1MON
     Dates: start: 20220428
  4. XOFIGO [Suspect]
     Active Substance: RADIUM RA-223 DICHLORIDE
     Indication: Prostate cancer
     Dosage: UNK UNK, Q1MON
     Dates: start: 20220526
  5. DECAPEPTYL SEMESTRAL [Concomitant]
     Dosage: EVERY SIX MONTHS
  6. XGEVA [Concomitant]
     Active Substance: DENOSUMAB
     Dosage: UNK UNK, Q3MON

REACTIONS (5)
  - Prostate cancer [None]
  - Prostatic specific antigen increased [None]
  - Paraesthesia [None]
  - Decreased appetite [None]
  - Abdominal discomfort [None]

NARRATIVE: CASE EVENT DATE: 20220524
